FAERS Safety Report 5947468-7 (Version None)
Quarter: 2008Q4

REPORT INFORMATION
  Report Type: 
  Country: None (occurrence: None)
  Receive Date: 20081110
  Receipt Date: 20081105
  Transmission Date: 20090506
  Serious: Yes (Death)
  Sender: FDA-Public Use
  Company Number: JP-ABBOTT-08P-087-0484222-00

PATIENT
  Age: 88 Year
  Sex: Male
  Weight: 63.4 kg

DRUGS (3)
  1. LEUPROLIDE ACETATE [Suspect]
     Indication: PROSTATE CANCER STAGE II
     Route: 058
     Dates: start: 20060607, end: 20070606
  2. LEUPROLIDE ACETATE [Suspect]
     Dates: start: 20051122, end: 20060510
  3. PROPIVERINE HYDROCHLORIDE [Concomitant]
     Indication: POLLAKIURIA
     Route: 048
     Dates: start: 20060315, end: 20070605

REACTIONS (2)
  - CARDIAC DISORDER [None]
  - INJECTION SITE PRURITUS [None]
